FAERS Safety Report 6443492-9 (Version None)
Quarter: 2009Q4

REPORT INFORMATION
  Report Type: 
  Country: None (occurrence: None)
  Receive Date: 20091117
  Receipt Date: 20091106
  Transmission Date: 20100525
  Serious: Yes (Hospitalization)
  Sender: FDA-Public Use
  Company Number: US-JNJFOC-20091102616

PATIENT
  Sex: Male
  Weight: 62 kg

DRUGS (4)
  1. REMICADE [Suspect]
     Indication: CROHN'S DISEASE
     Route: 042
     Dates: start: 20081113, end: 20090608
  2. PREDNISONE [Concomitant]
  3. CIPRO [Concomitant]
  4. CIMZIA [Concomitant]

REACTIONS (1)
  - CROHN'S DISEASE [None]
